FAERS Safety Report 11238650 (Version 2)
Quarter: 2015Q3

REPORT INFORMATION
  Report Type: Spontaneous
  Country: JP (occurrence: JP)
  Receive Date: 20150706
  Receipt Date: 20150715
  Transmission Date: 20151125
  Serious: Yes (Hospitalization, Other)
  Sender: FDA-Public Use
  Company Number: PHJP2015JP010676

PATIENT
  Age: 48 Year
  Sex: Male

DRUGS (1)
  1. AFINITOR [Suspect]
     Active Substance: EVEROLIMUS
     Indication: METASTATIC RENAL CELL CARCINOMA
     Dosage: 10 MG, QD
     Route: 048
     Dates: start: 20140708

REACTIONS (9)
  - Chills [Unknown]
  - Abdominal pain lower [Unknown]
  - Renal impairment [Unknown]
  - Anuria [Unknown]
  - Appendicitis perforated [Unknown]
  - Abdominal abscess [Unknown]
  - Pyrexia [Unknown]
  - Malaise [Unknown]
  - Cough [Unknown]
